FAERS Safety Report 5078946-3 (Version None)
Quarter: 2006Q3

REPORT INFORMATION
  Report Type: 
  Country: None (occurrence: None)
  Receive Date: 20060814
  Receipt Date: 20060802
  Transmission Date: 20061208
  Serious: Yes (Other)
  Sender: FDA-Public Use
  Company Number: US-JNJFOC-20060801868

PATIENT
  Sex: Female
  Weight: 68.04 kg

DRUGS (5)
  1. FENTANYL TRANSDERMAL SYSTEM [Suspect]
     Route: 062
  2. FENTANYL TRANSDERMAL SYSTEM [Suspect]
     Indication: PAIN
     Route: 062
  3. FENTANYL [Suspect]
     Indication: PAIN
     Route: 062
  4. KLONOPIN [Concomitant]
     Indication: MUSCLE RELAXANT THERAPY
     Route: 048
  5. LEXAPRO [Concomitant]
     Indication: NERVOUSNESS
     Route: 048

REACTIONS (3)
  - EMPHYSEMA [None]
  - PHARMACEUTICAL PRODUCT COMPLAINT [None]
  - THERAPEUTIC RESPONSE DECREASED [None]
